FAERS Safety Report 4544884-5 (Version None)
Quarter: 2005Q1

REPORT INFORMATION
  Report Type: 
  Country: None (occurrence: None)
  Receive Date: 20050104
  Receipt Date: 20041220
  Transmission Date: 20050727
  Serious: No
  Sender: FDA-Public Use
  Company Number: 9545

PATIENT
  Age: 59 Year
  Sex: Female

DRUGS (5)
  1. METHOTREXATE [Suspect]
     Indication: RHEUMATOID ARTHRITIS
     Dosage: 15 MG WEEKLY PO
     Route: 048
     Dates: start: 20040601, end: 20040914
  2. NAPROXEN SODIUM [Concomitant]
  3. PARACETAMOL/CODEINE [Concomitant]
  4. IMIPRAM TAB [Concomitant]
     Indication: DEPRESSION
     Dosage: 30MG NOCTE, PO
     Route: 048
  5. ........ [Concomitant]

REACTIONS (4)
  - COUGH [None]
  - DYSPNOEA [None]
  - HYPOXIA [None]
  - PNEUMONITIS [None]
